FAERS Safety Report 6426894-6 (Version None)
Quarter: 2009Q4

REPORT INFORMATION
  Report Type: 
  Country: None (occurrence: None)
  Receive Date: 20091104
  Receipt Date: 20091023
  Transmission Date: 20100525
  Serious: Yes (Hospitalization)
  Sender: FDA-Public Use
  Company Number: US-MYLANLABS-2009S1018527

PATIENT
  Age: 24 Year
  Sex: Male

DRUGS (2)
  1. PROPRANOLOL HYDROCHLORIDE EXTENDED-RELEASE CAPSULES, USP [Suspect]
     Indication: NERVOUS SYSTEM DISORDER
     Route: 048
  2. PROPRANOLOL HYDROCHLORIDE EXTENDED-RELEASE CAPSULES, USP [Suspect]
     Indication: TREMOR
     Route: 048

REACTIONS (1)
  - CARDIAC ARREST [None]
